FAERS Safety Report 8186120-7 (Version None)
Quarter: 2012Q1

REPORT INFORMATION
  Report Type: 
  Country: None (occurrence: None)
  Receive Date: 20120301
  Receipt Date: 20120210
  Transmission Date: 20120608
  Serious: Yes (Other)
  Sender: FDA-Public Use
  Company Number: COL_11026_2012

PATIENT
  Sex: Female

DRUGS (5)
  1. COLGATE TOTAL [Suspect]
     Indication: DENTAL PLAQUE
     Dosage: ONE TEASPOON/ONCE/ORAL
     Route: 048
     Dates: start: 20120207, end: 20120207
  2. COLGATE TOTAL [Suspect]
     Indication: DENTAL CARIES
     Dosage: ONE TEASPOON/ONCE/ORAL
     Route: 048
     Dates: start: 20120207, end: 20120207
  3. COLGATE TOTAL [Suspect]
     Indication: GINGIVITIS
     Dosage: ONE TEASPOON/ONCE/ORAL
     Route: 048
     Dates: start: 20120207, end: 20120207
  4. PAIN RELIEVERS [Concomitant]
  5. KEFLEX [Concomitant]

REACTIONS (3)
  - ACCIDENTAL DRUG INTAKE BY CHILD [None]
  - FEBRILE CONVULSION [None]
  - VOMITING [None]
